FAERS Safety Report 12141861 (Version 1)
Quarter: 2016Q1

REPORT INFORMATION
  Report Type: Spontaneous
  Country: TW (occurrence: TW)
  Receive Date: 20160303
  Receipt Date: 20160303
  Transmission Date: 20160526
  Serious: Yes (Death)
  Sender: FDA-Public Use
  Company Number: PHHY2016TW028350

PATIENT
  Age: 80 Year
  Sex: Male

DRUGS (4)
  1. MESYREL [Suspect]
     Active Substance: TRAZODONE HYDROCHLORIDE
     Indication: SCHIZOPHRENIA
     Dosage: 50 MG, UNK
     Route: 065
  2. QUETIAPINE [Suspect]
     Active Substance: QUETIAPINE
     Indication: SCHIZOPHRENIA
     Dosage: 150 MG, QD
     Route: 065
  3. MIDAZOLAM [Suspect]
     Active Substance: MIDAZOLAM\MIDAZOLAM HYDROCHLORIDE
     Indication: SCHIZOPHRENIA
     Dosage: 15 MG, AT BEDTIMES
     Route: 065
  4. KINZOLAM [Suspect]
     Active Substance: ESTAZOLAM
     Indication: SCHIZOPHRENIA
     Dosage: 4 MG, QD
     Route: 065

REACTIONS (1)
  - Choking [Fatal]
